FAERS Safety Report 11791778 (Version 1)
Quarter: 2015Q4

REPORT INFORMATION
  Report Type: Spontaneous
  Country: US (occurrence: US)
  Receive Date: 20151201
  Receipt Date: 20151201
  Transmission Date: 20160305
  Serious: Yes (Other)
  Sender: FDA-Public Use
  Company Number: US-BAYER-2015-472484

PATIENT
  Age: 74 Year
  Sex: Male
  Weight: 77.98 kg

DRUGS (1)
  1. ALKA-SELTZER PLUS COLD FORMULA [Suspect]
     Active Substance: ASPIRIN\CHLORPHENIRAMINE MALEATE\PHENYLEPHRINE BITARTRATE
     Indication: GASTRIC DISORDER
     Dosage: 2 DF, QD
     Route: 048

REACTIONS (4)
  - Drug dependence [None]
  - Intentional product use issue [None]
  - Product use issue [None]
  - Extra dose administered [None]
